FAERS Safety Report 10226412 (Version 1)
Quarter: 2014Q2

REPORT INFORMATION
  Report Type: Spontaneous
  Country: US (occurrence: US)
  Receive Date: 20140609
  Receipt Date: 20140609
  Transmission Date: 20141212
  Serious: No
  Sender: FDA-Public Use
  Company Number: US-AMGEN INC.-USASP2013053597

PATIENT
  Age: 49 Year
  Sex: Female

DRUGS (9)
  1. PROCRIT [Suspect]
     Indication: PRODUCT USED FOR UNKNOWN INDICATION
     Dosage: 10000 UNIT, 2 TIMES/WK
     Route: 065
  2. RENAGEL                            /01459901/ [Concomitant]
     Dosage: 800 MG, UNK
  3. SODIUM BICARBONATE [Concomitant]
     Dosage: UNK
  4. ALLOPURINOL [Concomitant]
     Dosage: UNK
  5. VITAMIN D                          /00107901/ [Concomitant]
     Dosage: 50000 UNIT, UNK
  6. NORVASC [Concomitant]
     Dosage: 5 MG, UNK
  7. LISINOPRIL [Concomitant]
     Dosage: 30 MG, UNK
  8. TYLENOL EXTRA STRENGTH [Concomitant]
     Dosage: 500 MG, UNK
  9. PREDNISONE [Concomitant]
     Dosage: 10 MG, ONE TIME
     Dates: start: 20130715, end: 20130715

REACTIONS (1)
  - Drug administration error [Unknown]
